FAERS Safety Report 21924596 (Version 1)
Quarter: 2023Q1

REPORT INFORMATION
  Report Type: Report from Study
  Country: IT (occurrence: IT)
  Receive Date: 20230130
  Receipt Date: 20230130
  Transmission Date: 20230417
  Serious: Yes (Hospitalization)
  Sender: FDA-Public Use
  Company Number: None

PATIENT
  Age: 30 Year
  Sex: Male

DRUGS (4)
  1. MIRTAZAPINE [Suspect]
     Active Substance: MIRTAZAPINE
     Indication: Drug abuse
     Dosage: 10 DOSAGE FORM
     Route: 048
     Dates: start: 20210408, end: 20210408
  2. CHLORPROMAZINE HYDROCHLORIDE [Suspect]
     Active Substance: CHLORPROMAZINE HYDROCHLORIDE
     Indication: Drug abuse
     Route: 048
     Dates: start: 20210408, end: 20210408
  3. VALPROIC ACID [Suspect]
     Active Substance: VALPROIC ACID
     Indication: Drug abuse
     Route: 048
     Dates: start: 20210408, end: 20210408
  4. TAVOR (LORAZEPAM) [Concomitant]
     Active Substance: LORAZEPAM

REACTIONS (3)
  - Tachycardia [Not Recovered/Not Resolved]
  - Drug abuse [Not Recovered/Not Resolved]
  - Sopor [Not Recovered/Not Resolved]

NARRATIVE: CASE EVENT DATE: 20210408
